FAERS Safety Report 11865379 (Version 2)
Quarter: 2016Q1

REPORT INFORMATION
  Report Type: Spontaneous
  Country: DE (occurrence: DE)
  Receive Date: 20151223
  Receipt Date: 20160113
  Transmission Date: 20160526
  Serious: Yes (Other)
  Sender: FDA-Public Use
  Company Number: DE-TEVA-618614GER

PATIENT
  Sex: Female

DRUGS (1)
  1. ZOLPIDEM [Suspect]
     Active Substance: ZOLPIDEM\ZOLPIDEM TARTRATE
     Indication: SLEEP DISORDER
     Dosage: 10 MILLIGRAM DAILY; INTAKE AT NIGHT
     Route: 048
     Dates: start: 201505, end: 20151205

REACTIONS (4)
  - Loss of consciousness [Unknown]
  - Drug dependence [Unknown]
  - Illusion [Unknown]
  - Insomnia [Unknown]

NARRATIVE: CASE EVENT DATE: 2015
